FAERS Safety Report 18292807 (Version 1)
Quarter: 2020Q3

REPORT INFORMATION
  Report Type: Spontaneous
  Country: SE (occurrence: SE)
  Receive Date: 20200922
  Receipt Date: 20200922
  Transmission Date: 20201103
  Serious: Yes (Other)
  Sender: FDA-Public Use
  Company Number: SE-ACCORD-202170

PATIENT
  Age: 93 Year
  Sex: Female

DRUGS (6)
  1. GALANTAMINE/GALANTAMINE HYDROBROMIDE [Concomitant]
     Active Substance: GALANTAMINE\GALANTAMINE HYDROBROMIDE
     Dates: start: 20190123
  2. MEMANTINE/MEMANTINE HYDROCHLORIDE [Concomitant]
     Active Substance: MEMANTINE HYDROCHLORIDE
     Dates: start: 20190212
  3. IDOTRIM [Concomitant]
     Active Substance: TRIMETHOPRIM
     Dates: start: 20181128
  4. LETROZOLE. [Suspect]
     Active Substance: LETROZOLE
     Indication: BREAST CANCER
     Dosage: 2.5 MG 1 TABLET AT 08
     Route: 048
     Dates: start: 20200121
  5. LETROZOLE. [Suspect]
     Active Substance: LETROZOLE
     Indication: OESTROGEN THERAPY
  6. ALVEDON [Concomitant]
     Active Substance: ACETAMINOPHEN
     Dates: start: 20180831

REACTIONS (2)
  - Breath odour [Recovered/Resolved]
  - Cough [Recovering/Resolving]

NARRATIVE: CASE EVENT DATE: 2020
